FAERS Safety Report 6969113-4 (Version None)
Quarter: 2010Q3

REPORT INFORMATION
  Report Type: 
  Country: None (occurrence: None)
  Receive Date: 20100907
  Receipt Date: 20100826
  Transmission Date: 20110219
  Serious: Yes (Other)
  Sender: FDA-Public Use
  Company Number: JP-PFIZER INC-2010107843

PATIENT
  Age: 80 Year
  Sex: Female

DRUGS (3)
  1. GABAPEN [Suspect]
     Dosage: UNK
     Route: 048
     Dates: end: 20100823
  2. GABAPEN [Suspect]
     Dosage: UNK
     Route: 048
     Dates: start: 20100824
  3. PHENYTOIN SODIUM [Concomitant]
     Route: 048

REACTIONS (2)
  - DELIRIUM [None]
  - EYELID FUNCTION DISORDER [None]
